FAERS Safety Report 9506480 (Version 1)
Quarter: 2013Q3

REPORT INFORMATION
  Report Type: Spontaneous
  Country: FR (occurrence: FR)
  Receive Date: 20130906
  Receipt Date: 20130906
  Transmission Date: 20140515
  Serious: Yes (Other)
  Sender: FDA-Public Use
  Company Number: PHHY2013FR097879

PATIENT
  Sex: Female

DRUGS (2)
  1. AFINITOR [Suspect]
     Indication: BREAST CANCER METASTATIC
     Dosage: 10 MG, QD
     Route: 048
  2. EXEMESTANE [Concomitant]
     Dosage: 25 MG, QD
     Route: 048

REACTIONS (2)
  - Lung disorder [Not Recovered/Not Resolved]
  - Cough [Not Recovered/Not Resolved]
